FAERS Safety Report 6276348-5 (Version None)
Quarter: 2009Q3

REPORT INFORMATION
  Report Type: 
  Country: None (occurrence: None)
  Receive Date: 20090722
  Receipt Date: 20090716
  Transmission Date: 20100115
  Serious: Yes (Death, Hospitalization)
  Sender: FDA-Public Use
  Company Number: MY-CELGENEUS-101-C5013-09051201

PATIENT
  Sex: Female
  Weight: 60 kg

DRUGS (7)
  1. CC-5013 [Suspect]
     Indication: MULTIPLE MYELOMA
     Route: 048
  2. CC-5013 [Suspect]
     Route: 048
  3. EPOGEN [Concomitant]
     Route: 065
     Dates: start: 20060501
  4. MERONEM [Concomitant]
     Indication: DRUG USE FOR UNKNOWN INDICATION
     Route: 065
  5. FLUCONAZOLE [Concomitant]
     Indication: DRUG USE FOR UNKNOWN INDICATION
     Route: 065
  6. IG [Concomitant]
     Route: 051
  7. TPN [Concomitant]
     Indication: DRUG USE FOR UNKNOWN INDICATION
     Route: 050

REACTIONS (4)
  - CEREBROVASCULAR ACCIDENT [None]
  - INFECTION [None]
  - MULTIPLE MYELOMA [None]
  - THROMBOCYTOPENIA [None]
